FAERS Safety Report 4468411-6 (Version None)
Quarter: 2004Q4

REPORT INFORMATION
  Report Type: 
  Country: None (occurrence: None)
  Receive Date: 20041004
  Receipt Date: 20040917
  Transmission Date: 20050328
  Serious: Yes (Other)
  Sender: FDA-Public Use
  Company Number: 04-000680

PATIENT
  Sex: Female

DRUGS (1)
  1. OVCON-50 [Suspect]
     Dosage: 50/1000UG, ORAL
     Route: 048

REACTIONS (1)
  - BREAST CANCER FEMALE [None]
